FAERS Safety Report 19936965 (Version 1)
Quarter: 2021Q4

REPORT INFORMATION
  Report Type: Spontaneous
  Country: US (occurrence: US)
  Receive Date: 20211009
  Receipt Date: 20211009
  Transmission Date: 20220303
  Serious: Yes (Other)
  Sender: FDA-Public Use
  Company Number: US-TEVA-2021-US-1962976

PATIENT
  Sex: Female

DRUGS (1)
  1. EPINEPHRINE [Suspect]
     Active Substance: EPINEPHRINE
     Dosage: EPI-PEN
     Route: 065

REACTIONS (4)
  - Device malfunction [Unknown]
  - Injection site injury [Unknown]
  - Contusion [Unknown]
  - Drug dose omission by device [Unknown]
